FAERS Safety Report 11138594 (Version 3)
Quarter: 2015Q2

REPORT INFORMATION
  Report Type: Spontaneous
  Country: GB (occurrence: GB)
  Receive Date: 20150527
  Receipt Date: 20150609
  Transmission Date: 20150821
  Serious: Yes (Hospitalization)
  Sender: FDA-Public Use
  Company Number: GB-PFIZER INC-2015170051

PATIENT
  Age: 71 Year
  Sex: Male
  Weight: 61 kg

DRUGS (8)
  1. EPIRUBICIN HCL [Suspect]
     Active Substance: EPIRUBICIN HYDROCHLORIDE
     Indication: ADENOCARCINOMA GASTRIC
     Dosage: 88 MG, UNK
     Route: 042
     Dates: start: 20090528
  2. DIFFLAM [Concomitant]
     Active Substance: BENZYDAMINE HYDROCHLORIDE
     Dosage: UNK
     Route: 048
  3. XELODA [Suspect]
     Active Substance: CAPECITABINE
     Indication: ADENOCARCINOMA GASTRIC
     Dosage: 2150 MG, UNK
     Route: 048
     Dates: start: 20090523
  4. STRONTIUM CHLORIDE [Concomitant]
     Active Substance: STRONTIUM CHLORIDE
     Dosage: UNK
     Route: 065
     Dates: start: 20090627, end: 20090629
  5. CISPLATIN. [Suspect]
     Active Substance: CISPLATIN
     Indication: ADENOCARCINOMA GASTRIC
     Dosage: 53 MG, UNK
     Route: 042
     Dates: start: 20090528
  6. OMEPRAZOLE. [Concomitant]
     Active Substance: OMEPRAZOLE
     Dosage: UNK
     Route: 048
  7. AVASTIN [Suspect]
     Active Substance: BEVACIZUMAB
     Indication: ADENOCARCINOMA GASTRIC
     Dosage: 487.5 MG, UNK
     Route: 042
     Dates: start: 20090523
  8. FLUCONAZOLE. [Concomitant]
     Active Substance: FLUCONAZOLE
     Dosage: UNK
     Route: 048
     Dates: start: 20090701, end: 20090710

REACTIONS (1)
  - Infection [Recovered/Resolved]

NARRATIVE: CASE EVENT DATE: 20090702
